FAERS Safety Report 15389967 (Version 1)
Quarter: 2018Q3

REPORT INFORMATION
  Report Type: Report from Study
  Country: JP (occurrence: JP)
  Receive Date: 20180917
  Receipt Date: 20180917
  Transmission Date: 20181010
  Serious: Yes (Other)
  Sender: FDA-Public Use
  Company Number: JP-TAKEDA-2018MPI007396

PATIENT
  Age: 57 Year
  Sex: Female
  Weight: 47.5 kg

DRUGS (4)
  1. DARZALEX [Suspect]
     Active Substance: DARATUMUMAB
     Dosage: 16 MG/KG, Q3WEEKS
     Route: 041
     Dates: start: 20180406, end: 2018
  2. BORTEZOMIB. [Suspect]
     Active Substance: BORTEZOMIB
     Indication: PLASMA CELL MYELOMA
     Dosage: 1.3 MG/M2, UNK
     Route: 058
     Dates: start: 20180122, end: 20180406
  3. DEXAMETHASONE. [Concomitant]
     Active Substance: DEXAMETHASONE
     Indication: PLASMA CELL MYELOMA
     Dosage: 9.9 MG, QD
     Route: 065
     Dates: start: 20180122
  4. DARZALEX [Suspect]
     Active Substance: DARATUMUMAB
     Indication: PLASMA CELL MYELOMA
     Dosage: 16 MG/KG, 1/WEEK
     Route: 041
     Dates: start: 20180122, end: 20180330

REACTIONS (7)
  - Thrombosis [Recovered/Resolved]
  - Plasma cell myeloma [Unknown]
  - Chills [Recovered/Resolved]
  - Oedema [Recovered/Resolved]
  - Infusion related reaction [Recovered/Resolved]
  - Anaemia [Recovered/Resolved]
  - Ingrowing nail [Recovering/Resolving]

NARRATIVE: CASE EVENT DATE: 20180122
